FAERS Safety Report 9952229 (Version 2)
Quarter: 2014Q1

REPORT INFORMATION
  Report Type: Spontaneous
  Country: BR (occurrence: BR)
  Receive Date: 20140304
  Receipt Date: 20140304
  Transmission Date: 20141002
  Serious: Yes (Other)
  Sender: FDA-Public Use
  Company Number: BR-PFIZER INC-2014045928

PATIENT
  Age: 67 Year
  Sex: Female
  Weight: 78 kg

DRUGS (8)
  1. LIPITOR [Suspect]
     Indication: BLOOD CHOLESTEROL ABNORMAL
     Dosage: 1 TABLET (20 MG), DAILY
     Route: 048
     Dates: start: 20091013
  2. CITALOR [Suspect]
     Dosage: ONE TABLET, DAILY
     Route: 048
     Dates: start: 20131117
  3. EUTHYROX [Concomitant]
     Indication: HYPOTHYROIDISM
     Dosage: ONE TABLET (100 UG), DAILY
     Dates: start: 2013
  4. HYZAAR [Concomitant]
     Indication: HYPERTENSION
     Dosage: [LOSARTAN POTASSIUM 10]/ [HYDROCHLOROTHIAZIDE 25], DAILY
     Dates: start: 2012
  5. ADDERA D3 [Concomitant]
     Dosage: 10 GTT, UNK
  6. BONVIVA [Concomitant]
     Dosage: 150 MG, UNK
  7. PROCIMAX [Concomitant]
     Dosage: 20 MG, UNK
  8. APRAZ [Concomitant]
     Dosage: 0.5 MG, UNK

REACTIONS (7)
  - Rib fracture [Unknown]
  - Injury [Unknown]
  - Cervical cord compression [Unknown]
  - Pain in extremity [Recovering/Resolving]
  - Back pain [Recovering/Resolving]
  - Spinal pain [Recovering/Resolving]
  - Carpal tunnel syndrome [Unknown]
